FAERS Safety Report 6575267-4 (Version None)
Quarter: 2010Q1

REPORT INFORMATION
  Report Type: 
  Country: None (occurrence: None)
  Receive Date: 20100209
  Receipt Date: 20100129
  Transmission Date: 20100710
  Serious: No
  Sender: FDA-Public Use
  Company Number: US-ROCHE-564816

PATIENT
  Sex: Female
  Weight: 8.3 kg

DRUGS (6)
  1. ISOTRETINOIN [Suspect]
     Indication: ACNE
     Dosage: THE PATIENT WAS DISPENSED ACCUTANE 40 MG CAPSULE ON 3 JAN 2008.
     Route: 064
     Dates: start: 20080103, end: 20080202
  2. ISOTRETINOIN [Suspect]
     Route: 064
     Dates: start: 20080225, end: 20080225
  3. ISOTRETINOIN [Suspect]
     Route: 064
  4. ISOTRETINOIN [Suspect]
     Dosage: DECREASED DOSE TO 40 MG/DAY SEVERAL DAYS BEFORE 31 MAR 2008 WHEN STOPPED TAKING
     Route: 064
     Dates: end: 20080331
  5. ISOTRETINOIN [Suspect]
     Route: 064
     Dates: end: 20080425
  6. CONTRACEPTIVE [Concomitant]
     Dosage: REPORTED AS 'ORAL CONTRACEPTIVE'

REACTIONS (3)
  - ANAEMIA [None]
  - JAUNDICE [None]
  - NORMAL NEWBORN [None]
